FAERS Safety Report 6821783-7 (Version None)
Quarter: 2010Q3

REPORT INFORMATION
  Report Type: 
  Country: None (occurrence: None)
  Receive Date: 20100707
  Receipt Date: 20100707
  Transmission Date: 20110219
  Serious: Yes (Hospitalization)
  Sender: FDA-Public Use
  Company Number: None

PATIENT
  Age: 58 Year
  Sex: Male
  Weight: 81.6475 kg

DRUGS (1)
  1. ZONISAMIDE [Suspect]
     Indication: EPILEPSY
     Dosage: 100MG 2 AM AND 3 PM PO
     Route: 048
     Dates: start: 20100101, end: 20100427

REACTIONS (8)
  - DRUG HYPERSENSITIVITY [None]
  - ECONOMIC PROBLEM [None]
  - HALLUCINATION [None]
  - HEPATIC FAILURE [None]
  - HYPERAMMONAEMIA [None]
  - PRODUCT FORMULATION ISSUE [None]
  - PRODUCT SUBSTITUTION ISSUE [None]
  - STATUS EPILEPTICUS [None]
